FAERS Safety Report 5489849-4 (Version None)
Quarter: 2007Q4

REPORT INFORMATION
  Report Type: 
  Country: None (occurrence: None)
  Receive Date: 20071018
  Receipt Date: 20071015
  Transmission Date: 20080405
  Serious: Yes (Other)
  Sender: FDA-Public Use
  Company Number: US-BRISTOL-MYERS SQUIBB COMPANY-13942685

PATIENT
  Age: 45 Year
  Sex: Female
  Weight: 64 kg

DRUGS (3)
  1. TAXOL [Suspect]
     Dosage: PACLITAXEL WAS DILUTED WITH DEXTROSE 5% IN WATER
     Route: 055
  2. TYLENOL (CAPLET) [Concomitant]
  3. ADVIL LIQUI-GELS [Concomitant]

REACTIONS (7)
  - ACCIDENTAL EXPOSURE [None]
  - ASTHMA [None]
  - BACK PAIN [None]
  - FEELING JITTERY [None]
  - HYPERHIDROSIS [None]
  - NERVOUSNESS [None]
  - PAIN [None]
